FAERS Safety Report 7334248-3 (Version None)
Quarter: 2011Q1

REPORT INFORMATION
  Report Type: 
  Country: None (occurrence: None)
  Receive Date: 20110307
  Receipt Date: 20110222
  Transmission Date: 20110831
  Serious: Yes (Other)
  Sender: FDA-Public Use
  Company Number: US-JNJFOC-20110207069

PATIENT
  Sex: Male

DRUGS (2)
  1. THALIDOMIDE [Suspect]
     Indication: PROSTATE CANCER METASTATIC
     Dosage: STARTING 100 MG/DAY, INCREASED BY 50 MG EVERY 4 WEEKS TO A MAX OF 200 MG/DAY.
     Route: 048
  2. DOXORUBICIN HCL [Suspect]
     Indication: PROSTATE CANCER METASTATIC
     Dosage: OVER 90 MINUTES ON DAY ONE OF EACH TREATMENT CYCLE (1 CYCLE = 28 DAYS)SUBSEQUENT DOSES OVER 60 MINS
     Route: 042

REACTIONS (1)
  - TREMOR [None]
